FAERS Safety Report 13737591 (Version 1)
Quarter: 2017Q3

REPORT INFORMATION
  Report Type: Spontaneous
  Country: US (occurrence: US)
  Receive Date: 20170710
  Receipt Date: 20170710
  Transmission Date: 20171127
  Serious: Yes (Other)
  Sender: FDA-Public Use
  Company Number: US-SAOL THERAPEUTICS-2016SAO01078

PATIENT
  Age: 60 Year
  Sex: Male

DRUGS (3)
  1. CLONIDINE. [Suspect]
     Active Substance: CLONIDINE
     Dosage: 6.3 ?G, \DAY
  2. BUPIVICAINE [Suspect]
     Active Substance: BUPIVACAINE
     Dosage: 0.151 MG, \DAY
  3. BACLOFEN. [Suspect]
     Active Substance: BACLOFEN
     Dosage: 0.76 ?G, \DAY

REACTIONS (2)
  - Pain [Unknown]
  - Device failure [Recovered/Resolved]

NARRATIVE: CASE EVENT DATE: 201610
